FAERS Safety Report 15265367 (Version 1)
Quarter: 2018Q3

REPORT INFORMATION
  Report Type: Spontaneous
  Country: US (occurrence: US)
  Receive Date: 20180810
  Receipt Date: 20180810
  Transmission Date: 20181010
  Serious: Yes (Hospitalization)
  Sender: FDA-Public Use
  Company Number: US-SA-2018SA207574

PATIENT
  Age: 72 Year
  Sex: Male

DRUGS (1)
  1. BCG FOR IMMUNOTHERAPY [Suspect]
     Active Substance: BACILLUS CALMETTE-GUERIN ANTIGEN, UNSPECIFIED SUBSTRAIN
     Indication: BLADDER CANCER

REACTIONS (5)
  - Hypercalcaemia [Recovering/Resolving]
  - Disseminated Bacillus Calmette-Guerin infection [Unknown]
  - Pyrexia [Unknown]
  - Asthenia [Unknown]
  - Somnolence [Unknown]
